FAERS Safety Report 5120561-7 (Version None)
Quarter: 2006Q4

REPORT INFORMATION
  Report Type: 
  Country: None (occurrence: None)
  Receive Date: 20061004
  Receipt Date: 20060927
  Transmission Date: 20070319
  Serious: Yes (Death, Life-Threatening)
  Sender: FDA-Public Use
  Company Number: DE-ROCHE-465085

PATIENT
  Age: 94 Year
  Sex: Female
  Weight: 35 kg

DRUGS (5)
  1. BONIVA [Suspect]
     Indication: OSTEOPOROSIS
     Dosage: FREQUENCY NOT PROVIDED
     Route: 065
     Dates: start: 20051115, end: 20060620
  2. RANITIDINE [Concomitant]
  3. OSPUR D3 [Concomitant]
  4. IBUPROFEN [Concomitant]
  5. COLINA [Concomitant]
     Dosage: REPORTED AS COLINA BEUTEL

REACTIONS (2)
  - GASTROINTESTINAL HAEMORRHAGE [None]
  - ULCER HAEMORRHAGE [None]
